FAERS Safety Report 13428190 (Version 3)
Quarter: 2017Q2

REPORT INFORMATION
  Report Type: Spontaneous
  Country: GB (occurrence: GB)
  Receive Date: 20170411
  Receipt Date: 20170522
  Transmission Date: 20170830
  Serious: Yes (Hospitalization, Other)
  Sender: FDA-Public Use
  Company Number: GB-PFIZER INC-2017151203

PATIENT
  Age: 56 Year
  Sex: Male

DRUGS (36)
  1. FLUOROURACIL. [Suspect]
     Active Substance: FLUOROURACIL
     Dosage: UNK
     Route: 042
     Dates: start: 20160316, end: 20160329
  2. FLUOROURACIL. [Suspect]
     Active Substance: FLUOROURACIL
     Dosage: 4800 MG, UNK OVER 46 HOURS
     Dates: start: 20151125
  3. OXALIPLATIN. [Suspect]
     Active Substance: OXALIPLATIN
     Dosage: UNK
     Route: 042
     Dates: start: 20151209
  4. BEVACIZUMAB [Suspect]
     Active Substance: BEVACIZUMAB
     Dosage: UNK
     Route: 042
     Dates: start: 20160127
  5. FLUOROURACIL. [Suspect]
     Active Substance: FLUOROURACIL
     Indication: COLORECTAL CANCER METASTATIC
     Dosage: UNK UNK, CYCLIC (ONCE IN 2 WEEKS)
     Route: 042
     Dates: start: 20150909, end: 20151001
  6. FLUOROURACIL. [Suspect]
     Active Substance: FLUOROURACIL
     Dosage: 800 MG, UNK EVERY 2 WEEKS
     Route: 042
     Dates: start: 20151125
  7. OXALIPLATIN. [Suspect]
     Active Substance: OXALIPLATIN
     Indication: COLORECTAL CANCER METASTATIC
     Dosage: UNK UNK, CYCLIC (ONCE IN 2 WEEKS)
     Route: 042
     Dates: start: 20150909, end: 20151001
  8. BEVACIZUMAB [Suspect]
     Active Substance: BEVACIZUMAB
     Dosage: UNK
     Route: 042
     Dates: start: 20151209
  9. BEVACIZUMAB [Suspect]
     Active Substance: BEVACIZUMAB
     Dosage: UNK
     Route: 042
     Dates: start: 20160405
  10. FOLINIC ACID [Suspect]
     Active Substance: LEUCOVORIN
     Dosage: 350 MG
     Route: 042
     Dates: start: 20161125
  11. FOLINIC ACID [Suspect]
     Active Substance: LEUCOVORIN
     Dosage: UNK
     Route: 042
     Dates: start: 20151209
  12. FOLINIC ACID [Suspect]
     Active Substance: LEUCOVORIN
     Dosage: 350 MG, CYCLIC (EVERY 2 WEEKS)
  13. CO-AMOXICLAV [Concomitant]
     Active Substance: AMOXICILLIN\CLAVULANIC ACID
     Dosage: 625 MG, UNK
     Dates: start: 20160531, end: 20160621
  14. DEXAMETHASONE. [Concomitant]
     Active Substance: DEXAMETHASONE
     Dosage: 8 MG, DAILY
     Dates: start: 20150819
  15. FLUCLOXACILLIN [Concomitant]
     Active Substance: FLUCLOXACILLIN
     Dosage: 500 MG, UNK
     Dates: start: 20160712, end: 20160716
  16. BEVACIZUMAB [Suspect]
     Active Substance: BEVACIZUMAB
     Indication: COLORECTAL CANCER METASTATIC
     Dosage: 490 MG, CYCLIC (ONCE IN 2 WEEKS)
     Route: 042
     Dates: start: 20150909, end: 20151001
  17. FOLINIC ACID [Suspect]
     Active Substance: LEUCOVORIN
     Dosage: 400 MG/M2, CYCLIC (ONCE EVERY TWO WEEKS)
     Route: 042
     Dates: start: 20160127, end: 20160329
  18. FLUOROURACIL. [Suspect]
     Active Substance: FLUOROURACIL
     Dosage: 800 MG, UNK
     Route: 040
     Dates: start: 20151111
  19. FLUOROURACIL. [Suspect]
     Active Substance: FLUOROURACIL
     Dosage: UNK
     Route: 042
     Dates: start: 20160914, end: 20161012
  20. OXALIPLATIN. [Suspect]
     Active Substance: OXALIPLATIN
     Dosage: UNK
     Route: 042
     Dates: start: 20151111
  21. BEVACIZUMAB [Suspect]
     Active Substance: BEVACIZUMAB
     Dosage: UNK
     Route: 042
     Dates: start: 20151111
  22. BEVACIZUMAB [Suspect]
     Active Substance: BEVACIZUMAB
     Dosage: UNK
     Route: 042
     Dates: start: 20160316, end: 20160329
  23. FLUOROURACIL. [Suspect]
     Active Substance: FLUOROURACIL
     Dosage: 4800 MG, UNK
     Route: 042
     Dates: start: 20160127
  24. FLUOROURACIL. [Suspect]
     Active Substance: FLUOROURACIL
     Dosage: UNK
     Route: 042
     Dates: start: 20160405
  25. BEVACIZUMAB [Suspect]
     Active Substance: BEVACIZUMAB
     Dosage: UNK
     Route: 042
     Dates: start: 20151125
  26. BEVACIZUMAB [Suspect]
     Active Substance: BEVACIZUMAB
     Dosage: UNK
     Route: 042
     Dates: start: 20160914, end: 20161012
  27. FLUOROURACIL. [Suspect]
     Active Substance: FLUOROURACIL
     Dosage: 4800 MG, UNK
     Route: 041
     Dates: start: 20151111
  28. OXALIPLATIN. [Suspect]
     Active Substance: OXALIPLATIN
     Dosage: 170 MG, UNK EVERY 2 WEEKS
     Route: 042
     Dates: start: 20151125
  29. FOLINIC ACID [Suspect]
     Active Substance: LEUCOVORIN
     Indication: COLORECTAL CANCER METASTATIC
     Dosage: UNK (ONCE IN 2 WEEKS)
     Route: 042
     Dates: start: 20150909, end: 20151001
  30. FLUOROURACIL. [Suspect]
     Active Substance: FLUOROURACIL
     Dosage: UNK
     Dates: start: 20151209
  31. OXALIPLATIN. [Suspect]
     Active Substance: OXALIPLATIN
     Dosage: UNK
     Route: 042
     Dates: start: 20160127
  32. FOLINIC ACID [Suspect]
     Active Substance: LEUCOVORIN
     Dosage: 350 MG, CYCLIC (ONCE IN 2 WEEKS)
     Route: 042
     Dates: start: 20151111
  33. CO-AMOXICLAV [Concomitant]
     Active Substance: AMOXICILLIN\CLAVULANIC ACID
     Dosage: 1875 MG, UNK
     Dates: start: 20160802, end: 20160802
  34. DALTEPARIN [Concomitant]
     Active Substance: DALTEPARIN
     Dosage: 5000 IU, DAILY (INTERNATIONAL UNIT)
     Dates: start: 20151130, end: 20151207
  35. ONDANSETRON [Concomitant]
     Active Substance: ONDANSETRON
     Dosage: 8 MG, DAILY
     Dates: start: 20151110
  36. CO-AMOXICILLIN [Concomitant]
     Active Substance: AMOXICILLIN\CLAVULANATE POTASSIUM
     Dosage: 1.2 G, UNK
     Route: 042
     Dates: start: 20160331, end: 20160406

REACTIONS (11)
  - Catheter site infection [Recovered/Resolved]
  - Fatigue [Unknown]
  - Viral infection [Recovered/Resolved]
  - Acute kidney injury [Recovered/Resolved]
  - Neutropenia [Recovered/Resolved]
  - Abdominal discomfort [Unknown]
  - Constipation [Recovered/Resolved]
  - Peripheral sensory neuropathy [Unknown]
  - Urinary tract infection [Recovered/Resolved]
  - Lower respiratory tract infection [Recovered/Resolved]
  - Proteinuria [Recovered/Resolved]

NARRATIVE: CASE EVENT DATE: 20150909
